FAERS Safety Report 4846732-2 (Version None)
Quarter: 2005Q4

REPORT INFORMATION
  Report Type: 
  Country: None (occurrence: None)
  Receive Date: 20051206
  Receipt Date: 20051005
  Transmission Date: 20060501
  Serious: Yes (Hospitalization, Disabling)
  Sender: FDA-Public Use
  Company Number: US-MERCK-0510USA04241

PATIENT
  Age: 48 Year
  Sex: Female
  Weight: 104 kg

DRUGS (1)
  1. VIOXX [Suspect]
     Indication: BACK INJURY
     Route: 048
     Dates: start: 20020501, end: 20030501

REACTIONS (4)
  - ASTHMA [None]
  - CARDIOVASCULAR DISORDER [None]
  - PAPILLARY THYROID CANCER [None]
  - PULMONARY OEDEMA [None]
